FAERS Safety Report 16279788 (Version 2)
Quarter: 2020Q4

REPORT INFORMATION
  Report Type: Spontaneous
  Country: US (occurrence: US)
  Receive Date: 20190507
  Receipt Date: 20201027
  Transmission Date: 20210113
  Serious: Yes (Other)
  Sender: FDA-Public Use
  Company Number: US-ASTRAZENECA-2019SE61669

PATIENT
  Age: 23066 Day
  Sex: Male
  Weight: 83.9 kg

DRUGS (55)
  1. ALPRAZOLAM. [Concomitant]
     Active Substance: ALPRAZOLAM
  2. CHOLECALCIFEROL [Concomitant]
     Active Substance: CHOLECALCIFEROL
  3. PRILOSEC [Suspect]
     Active Substance: OMEPRAZOLE MAGNESIUM
     Indication: GASTROOESOPHAGEAL REFLUX DISEASE
     Route: 048
     Dates: start: 200801, end: 201012
  4. COLCHICINE. [Concomitant]
     Active Substance: COLCHICINE
     Indication: GOUT
     Dates: start: 2007
  5. ASPIRIN. [Concomitant]
     Active Substance: ASPIRIN
     Indication: PAIN
     Dosage: AS REQUIRED
     Dates: start: 2007
  6. FERRITIN [Concomitant]
     Active Substance: FERRITIN
  7. TAMSULOSIN [Concomitant]
     Active Substance: TAMSULOSIN
  8. ASCORBIC ACID. [Concomitant]
     Active Substance: ASCORBIC ACID
  9. CALCIUM ACETATE. [Concomitant]
     Active Substance: CALCIUM ACETATE
  10. CYCLOPENTOLATE. [Concomitant]
     Active Substance: CYCLOPENTOLATE
  11. ZOVIRAX [Concomitant]
     Active Substance: ACYCLOVIR
  12. NEXIUM 24HR [Suspect]
     Active Substance: ESOMEPRAZOLE MAGNESIUM
     Indication: GASTROOESOPHAGEAL REFLUX DISEASE
     Route: 048
     Dates: start: 2010, end: 2014
  13. VITAMIN B12 [Concomitant]
     Active Substance: CYANOCOBALAMIN
  14. LIDEX [Concomitant]
     Active Substance: FLUOCINONIDE
  15. NEURONTIN [Concomitant]
     Active Substance: GABAPENTIN
  16. PRILOSEC [Suspect]
     Active Substance: OMEPRAZOLE MAGNESIUM
     Indication: GASTROOESOPHAGEAL REFLUX DISEASE
     Dosage: GENERIC
     Route: 065
     Dates: start: 2010, end: 2014
  17. PRILOSEC [Suspect]
     Active Substance: OMEPRAZOLE MAGNESIUM
     Indication: GASTROOESOPHAGEAL REFLUX DISEASE
     Route: 048
     Dates: start: 20110425
  18. TACROLIMUS. [Concomitant]
     Active Substance: TACROLIMUS
     Indication: ILL-DEFINED DISORDER
     Dates: start: 2007
  19. FINASTERIDE. [Concomitant]
     Active Substance: FINASTERIDE
  20. LOSARTAN. [Concomitant]
     Active Substance: LOSARTAN
  21. TURMERIC [Concomitant]
     Active Substance: HERBALS\TURMERIC
  22. REGLAN [Concomitant]
     Active Substance: METOCLOPRAMIDE HYDROCHLORIDE
  23. PRILOSEC [Suspect]
     Active Substance: OMEPRAZOLE MAGNESIUM
     Indication: GASTROOESOPHAGEAL REFLUX DISEASE
     Route: 048
     Dates: start: 2010, end: 2014
  24. PRILOSEC OTC [Suspect]
     Active Substance: OMEPRAZOLE MAGNESIUM
     Indication: GASTROOESOPHAGEAL REFLUX DISEASE
     Route: 048
     Dates: start: 200801, end: 201012
  25. PRILOSEC OTC [Suspect]
     Active Substance: OMEPRAZOLE MAGNESIUM
     Indication: GASTROOESOPHAGEAL REFLUX DISEASE
     Route: 048
     Dates: start: 2010, end: 2014
  26. ZEGERID OTC [Suspect]
     Active Substance: OMEPRAZOLE\SODIUM BICARBONATE
     Indication: GASTROOESOPHAGEAL REFLUX DISEASE
     Route: 065
     Dates: start: 2010, end: 2014
  27. SENNA PLUS [Concomitant]
     Active Substance: DOCUSATE SODIUM\SENNOSIDES\SENNOSIDES A AND B
     Indication: CONSTIPATION
     Dates: start: 2007
  28. OXYCODONE [Concomitant]
     Active Substance: OXYCODONE
  29. DULCOLAX NOS [Concomitant]
     Active Substance: BISACODYL OR DOCUSATE SODIUM
  30. FOLATE [Concomitant]
     Active Substance: FOLATE SODIUM
  31. VITAMIN A [Concomitant]
     Active Substance: VITAMIN A
  32. VIGAMOX [Concomitant]
     Active Substance: MOXIFLOXACIN HYDROCHLORIDE
  33. BENADRYL [Concomitant]
     Active Substance: DIPHENHYDRAMINE HYDROCHLORIDE
  34. FERUMOXYTOL [Concomitant]
     Active Substance: FERUMOXYTOL NON-STOICHIOMETRIC MAGNETITE
  35. VITAMIN E [Concomitant]
     Active Substance: .ALPHA.-TOCOPHEROL
  36. CEPHALEXIN. [Concomitant]
     Active Substance: CEPHALEXIN
  37. FLEXERIL [Concomitant]
     Active Substance: CYCLOBENZAPRINE HYDROCHLORIDE
  38. METOPROLOL SUCCINATE. [Concomitant]
     Active Substance: METOPROLOL SUCCINATE
  39. POTASSIUM CHLORIDE. [Concomitant]
     Active Substance: POTASSIUM CHLORIDE
  40. VITAMIN B12 [Concomitant]
     Active Substance: CYANOCOBALAMIN
  41. MIDAZOLAM. [Concomitant]
     Active Substance: MIDAZOLAM
  42. ZOFRAN [Concomitant]
     Active Substance: ONDANSETRON HYDROCHLORIDE
  43. SODIUM BICARBONATE. [Concomitant]
     Active Substance: SODIUM BICARBONATE
  44. FISH OIL [Concomitant]
     Active Substance: FISH OIL
  45. NEVANAC [Concomitant]
     Active Substance: NEPAFENAC
  46. FENTANYL. [Concomitant]
     Active Substance: FENTANYL
  47. MULTIVITAMIN [Concomitant]
     Active Substance: VITAMINS
  48. PREVACID 24 HR [Suspect]
     Active Substance: LANSOPRAZOLE
     Indication: GASTROOESOPHAGEAL REFLUX DISEASE
     Route: 065
     Dates: start: 2010, end: 2014
  49. AMLODIPINE [Concomitant]
     Active Substance: AMLODIPINE BESYLATE
     Indication: BLOOD PRESSURE ABNORMAL
     Dates: start: 2007
  50. MYCOPHENOLATE [Concomitant]
     Active Substance: MYCOPHENOLIC ACID
     Indication: ILL-DEFINED DISORDER
     Dates: start: 2007
  51. ZANTAC [Concomitant]
     Active Substance: RANITIDINE HYDROCHLORIDE
     Dosage: 300
     Dates: start: 2018
  52. DOCUSATE [Concomitant]
     Active Substance: DOCUSATE
  53. CALCITRIOL. [Concomitant]
     Active Substance: CALCITRIOL
  54. GENTAMICIN. [Concomitant]
     Active Substance: GENTAMICIN
  55. BACTRIM [Concomitant]
     Active Substance: SULFAMETHOXAZOLE\TRIMETHOPRIM

REACTIONS (7)
  - End stage renal disease [Unknown]
  - Chronic kidney disease [Not Recovered/Not Resolved]
  - Nephrogenic anaemia [Unknown]
  - Renal failure [Unknown]
  - Stress [Unknown]
  - Hyperparathyroidism secondary [Unknown]
  - Anxiety [Unknown]

NARRATIVE: CASE EVENT DATE: 20121029
